FAERS Safety Report 14740760 (Version 2)
Quarter: 2018Q2

REPORT INFORMATION
  Report Type: Spontaneous
  Country: JP (occurrence: JP)
  Receive Date: 20180410
  Receipt Date: 20180424
  Transmission Date: 20180711
  Serious: Yes (Hospitalization)
  Sender: FDA-Public Use
  Company Number: JP-GE HEALTHCARE LIFE SCIENCES-2018CSU001161

PATIENT

DRUGS (13)
  1. PREGABALINUM [Concomitant]
     Dosage: UNK, BID
     Dates: start: 20170225
  2. DOXORUBICIN [Concomitant]
     Active Substance: DOXORUBICIN
     Dosage: 64 MG, QD
     Dates: start: 20170306, end: 20170307
  3. IFOSFAMIDE. [Concomitant]
     Active Substance: IFOSFAMIDE
     Dosage: 3.4 G, QD
     Dates: start: 20170327, end: 20170331
  4. IFOSFAMIDE. [Concomitant]
     Active Substance: IFOSFAMIDE
     Dosage: 50 MG, QD
     Dates: start: 20171024, end: 20171025
  5. HYDROMORPHONE HYDROCHLORIDE. [Concomitant]
     Active Substance: HYDROMORPHONE HYDROCHLORIDE
     Dosage: 14 UNK, UNK
     Route: 048
     Dates: start: 20180201
  6. DENOSUMAB [Concomitant]
     Active Substance: DENOSUMAB
     Dosage: 120 MG, QD
     Dates: start: 20171102
  7. DENOTAS [Concomitant]
     Active Substance: CALCIUM CARBONATE\CHOLECALCIFEROL\MAGNESIUM CARBONATE
     Dosage: UNK, QD
     Dates: start: 20171102
  8. DOXORUBICIN [Concomitant]
     Active Substance: DOXORUBICIN
     Dosage: 50 MG, QD
     Dates: start: 20170327, end: 20170328
  9. CISPLATIN. [Concomitant]
     Active Substance: CISPLATIN
     Dosage: 160 MG, QD
     Dates: start: 20170601, end: 20170601
  10. LOXOPROFEN SODIUM [Concomitant]
     Active Substance: LOXOPROFEN SODIUM
     Dosage: UNK UNK, TID
     Route: 048
     Dates: start: 20170225
  11. VONOPRAZAN FUMARATE [Concomitant]
     Active Substance: VONOPRAZAN FUMURATE
     Dosage: UNK
     Dates: start: 20170413
  12. DOXORUBICIN [Concomitant]
     Active Substance: DOXORUBICIN
     Dosage: 50 MG, QD
     Dates: start: 20170601, end: 20170602
  13. METASTRON [Suspect]
     Active Substance: STRONTIUM CHLORIDE SR-89
     Indication: OSTEOSARCOMA
     Dosage: 116 MBQ, SINGLE
     Route: 042
     Dates: start: 20180111, end: 20180111

REACTIONS (3)
  - Anaemia [Not Recovered/Not Resolved]
  - White blood cell count decreased [Not Recovered/Not Resolved]
  - Platelet count decreased [Not Recovered/Not Resolved]

NARRATIVE: CASE EVENT DATE: 20180212
